FAERS Safety Report 7531403-4 (Version None)
Quarter: 2011Q2

REPORT INFORMATION
  Report Type: 
  Country: None (occurrence: None)
  Receive Date: 20110608
  Receipt Date: 20110527
  Transmission Date: 20111010
  Serious: Yes (Hospitalization)
  Sender: FDA-Public Use
  Company Number: JP-ELI_LILLY_AND_COMPANY-JP201105008853

PATIENT
  Age: 50 Year
  Sex: Female

DRUGS (11)
  1. PHENYTOIN [Concomitant]
     Dosage: 100 MG, TID
     Route: 048
  2. LAC-B [Concomitant]
     Dosage: UNK
  3. FAMOTIDINE [Concomitant]
     Dosage: 20 MG, BID
     Route: 048
  4. SENNOSIDE [Concomitant]
     Dosage: 12 MG, PRN
     Route: 048
  5. TEGRETOL [Concomitant]
     Dosage: 200 MG, QD
     Route: 048
  6. ZOLPIDEM [Concomitant]
     Indication: INSOMNIA
     Dosage: UNK, PRN
  7. LAXOBERON [Concomitant]
     Dosage: 2.5 MG, BID
     Route: 048
  8. ONEALFA [Concomitant]
     Dosage: 1.0 UG, QD
     Route: 048
  9. EVISTA [Suspect]
     Route: 048
  10. DEPAKENE [Concomitant]
     Dosage: 400 MG, TID
     Route: 048
  11. LOXONIN [Concomitant]
     Dosage: 1 DF, PRN
     Route: 048

REACTIONS (2)
  - DYSURIA [None]
  - HOSPITALISATION [None]
